FAERS Safety Report 13428149 (Version 2)
Quarter: 2017Q2

REPORT INFORMATION
  Report Type: Report from Study
  Country: US (occurrence: US)
  Receive Date: 20170411
  Receipt Date: 20170508
  Transmission Date: 20170830
  Serious: Yes (Hospitalization)
  Sender: FDA-Public Use
  Company Number: US-ACTELION-A-US2016-147551

PATIENT
  Age: 73 Year
  Sex: Female
  Weight: 60.77 kg

DRUGS (9)
  1. OPSUMIT [Suspect]
     Active Substance: MACITENTAN
     Dosage: 10 MG, QD
     Route: 048
     Dates: start: 20161227
  2. VELETRI [Suspect]
     Active Substance: EPOPROSTENOL
     Dosage: 13 NG/KG, PER MIN
     Route: 042
  3. OPSUMIT [Suspect]
     Active Substance: MACITENTAN
     Indication: PULMONARY ARTERIAL HYPERTENSION
     Dosage: 10 MG, QD
     Route: 048
     Dates: end: 20161216
  4. VELETRI [Suspect]
     Active Substance: EPOPROSTENOL
     Indication: PULMONARY ARTERIAL HYPERTENSION
     Dosage: 20 NG/KG, PER MIN
     Route: 042
  5. OXYGEN. [Concomitant]
     Active Substance: OXYGEN
  6. VELETRI [Suspect]
     Active Substance: EPOPROSTENOL
     Dosage: 16 NG/KG, PER MIN
     Route: 042
  7. REVATIO [Suspect]
     Active Substance: SILDENAFIL CITRATE
     Indication: PRODUCT USED FOR UNKNOWN INDICATION
     Route: 065
  8. REMODULIN [Concomitant]
     Active Substance: TREPROSTINIL
  9. ADCIRCA [Concomitant]
     Active Substance: TADALAFIL

REACTIONS (20)
  - Oedema peripheral [Not Recovered/Not Resolved]
  - Epistaxis [Not Recovered/Not Resolved]
  - Vomiting [Unknown]
  - Unevaluable event [Unknown]
  - Pain in jaw [Unknown]
  - Headache [Unknown]
  - Pulmonary arterial hypertension [Unknown]
  - Weight increased [Unknown]
  - Dyspnoea [Unknown]
  - Fluid overload [Unknown]
  - Catheter site erythema [Recovered/Resolved]
  - Nasal congestion [Unknown]
  - Flushing [Unknown]
  - Nasal dryness [Unknown]
  - Catheter site scab [Unknown]
  - Catheter site pruritus [Recovered/Resolved]
  - Right ventricular failure [Not Recovered/Not Resolved]
  - Catheter site haemorrhage [Recovered/Resolved]
  - Nausea [Unknown]
  - Heart rate increased [Unknown]

NARRATIVE: CASE EVENT DATE: 20170203
